FAERS Safety Report 25769463 (Version 2)
Quarter: 2025Q4

REPORT INFORMATION
  Report Type: Spontaneous
  Country: CN (occurrence: CN)
  Receive Date: 20250906
  Receipt Date: 20251007
  Transmission Date: 20260118
  Serious: Yes (Hospitalization, Other)
  Sender: NOVITIUM PHARMA
  Company Number: CN-NOVITIUMPHARMA-2025CNNVP02241

PATIENT
  Age: 41 Year
  Sex: Male

DRUGS (8)
  1. CLARITHROMYCIN [Suspect]
     Active Substance: CLARITHROMYCIN
     Indication: Atypical mycobacterial infection
  2. PREDNISONE [Suspect]
     Active Substance: PREDNISONE
     Indication: Nephritis
  3. ASPIRIN [Concomitant]
     Active Substance: ASPIRIN
     Indication: Cerebrovascular accident
  4. CLOPIDOGREL [Concomitant]
     Active Substance: CLOPIDOGREL BISULFATE
     Indication: Cerebrovascular accident
  5. AZITHROMYCIN [Concomitant]
     Active Substance: AZITHROMYCIN
     Indication: Atypical mycobacterial infection
  6. RIFAMPIN [Concomitant]
     Active Substance: RIFAMPIN
     Indication: Atypical mycobacterial infection
  7. LINEZOLID [Concomitant]
     Active Substance: LINEZOLID
     Indication: Atypical mycobacterial infection
  8. MINOCYCLINE [Concomitant]
     Active Substance: MINOCYCLINE HYDROCHLORIDE
     Indication: Atypical mycobacterial infection

REACTIONS (4)
  - Intracranial infection [Recovering/Resolving]
  - Pulmonary mass [Recovering/Resolving]
  - Mycobacterial infection [Recovering/Resolving]
  - Gastrointestinal disorder [Unknown]
